FAERS Safety Report 8532990-X (Version None)
Quarter: 2012Q3

REPORT INFORMATION
  Report Type: 
  Country: None (occurrence: None)
  Receive Date: 20120724
  Receipt Date: 20120713
  Transmission Date: 20120928
  Serious: Yes (Other)
  Sender: FDA-Public Use
  Company Number: FR-NOVOPROD-356021

PATIENT
  Age: 51 Year
  Sex: Male

DRUGS (4)
  1. VICTOZA [Suspect]
     Dosage: 1.2 MG, QD
     Route: 058
     Dates: start: 20111124, end: 20120301
  2. METFORMIN HCL [Concomitant]
     Dosage: 2550 MG, QD
     Route: 048
  3. VICTOZA [Suspect]
     Indication: TYPE 2 DIABETES MELLITUS
     Dosage: 0.6 MG, QD
     Route: 058
  4. METFORMIN HCL [Concomitant]
     Dosage: 850 MG, TID

REACTIONS (3)
  - CHOLESTASIS [None]
  - PANCREATITIS [None]
  - CELL DEATH [None]
